FAERS Safety Report 5248670-2 (Version None)
Quarter: 2007Q1

REPORT INFORMATION
  Report Type: 
  Country: None (occurrence: None)
  Receive Date: 20070226
  Receipt Date: 20070226
  Transmission Date: 20070707
  Serious: Yes (Other)
  Sender: FDA-Public Use
  Company Number: None

PATIENT
  Age: 58 Year
  Sex: Male
  Weight: 111.5849 kg

DRUGS (1)
  1. 0.25% ACETIC ACID IRRIGATION BAXTER [Suspect]

REACTIONS (6)
  - CHEST DISCOMFORT [None]
  - COUGH [None]
  - DRUG DISPENSING ERROR [None]
  - DYSPNOEA [None]
  - MEDICATION ERROR [None]
  - RESPIRATION ABNORMAL [None]
